FAERS Safety Report 9260116 (Version 1)
Quarter: 2013Q2

REPORT INFORMATION
  Report Type: Spontaneous
  Country: DE (occurrence: DE)
  Receive Date: 20130429
  Receipt Date: 20130429
  Transmission Date: 20140414
  Serious: Yes (Hospitalization, Other)
  Sender: FDA-Public Use
  Company Number: DE-ELI_LILLY_AND_COMPANY-DE201303005211

PATIENT
  Sex: Male

DRUGS (9)
  1. HUMALOG LISPRO [Suspect]
     Dosage: UNK, PRN
     Route: 058
     Dates: start: 2008
  2. HUMALOG LISPRO [Suspect]
     Dosage: UNK
  3. ASPIRINE [Concomitant]
     Dosage: 100 DF, UNK
  4. METFORMIN [Concomitant]
     Dosage: 1000 DF, UNK
  5. TORASEMIDE [Concomitant]
  6. SPIRIVA [Concomitant]
  7. LEVEMIR [Concomitant]
  8. SALBUTAMOL [Concomitant]
  9. INEGY [Concomitant]

REACTIONS (4)
  - Leukaemia [Unknown]
  - Blood glucose increased [Recovered/Resolved]
  - Drug ineffective [Unknown]
  - Glycosylated haemoglobin increased [Unknown]
